FAERS Safety Report 8190722-1 (Version None)
Quarter: 2012Q1

REPORT INFORMATION
  Report Type: 
  Country: None (occurrence: None)
  Receive Date: 20120305
  Receipt Date: 20120227
  Transmission Date: 20120608
  Serious: Yes (Death)
  Sender: FDA-Public Use
  Company Number: CRC-12-043

PATIENT
  Age: 3 Year
  Sex: Female
  Weight: 21 kg

DRUGS (2)
  1. ONDANSETRON [Suspect]
     Indication: VOMITING
     Dosage: 2 MG ONCE; *SUBLINGUALLY
     Route: 060
     Dates: start: 20120111
  2. ONDANSETRON [Suspect]
     Indication: NAUSEA
     Dosage: 2 MG ONCE; *SUBLINGUALLY
     Route: 060
     Dates: start: 20120111

REACTIONS (2)
  - VENTRICULAR FIBRILLATION [None]
  - TORSADE DE POINTES [None]
